FAERS Safety Report 9540314 (Version 1)
Quarter: 2013Q2

REPORT INFORMATION
  Report Type: Spontaneous
  Country: US (occurrence: None)
  Receive Date: 20130531
  Receipt Date: 20130531
  Transmission Date: 20140414
  Serious: Yes (Hospitalization, Other)
  Sender: FDA-Public Use
  Company Number: 358083

PATIENT
  Age: 13 Year
  Sex: Male
  Weight: 82.3 kg

DRUGS (1)
  1. NORDITROPIN [Suspect]
     Route: 058
     Dates: start: 20120704, end: 20120801

REACTIONS (2)
  - Benign intracranial hypertension [None]
  - Papilloedema [None]
